FAERS Safety Report 16249698 (Version 2)
Quarter: 2019Q3

REPORT INFORMATION
  Report Type: Spontaneous
  Country: DE (occurrence: DE)
  Receive Date: 20190429
  Receipt Date: 20190828
  Transmission Date: 20191004
  Serious: Yes (Hospitalization)
  Sender: FDA-Public Use
  Company Number: PHHY2019DE094791

PATIENT
  Age: 43 Year
  Sex: Female
  Weight: 100 kg

DRUGS (5)
  1. MEKINIST [Suspect]
     Active Substance: TRAMETINIB DIMETHYL SULFOXIDE
     Indication: METASTATIC MALIGNANT MELANOMA
     Dosage: 3 MG, QD
     Route: 048
     Dates: start: 20190122, end: 20190402
  2. NEBIVOLOL. [Concomitant]
     Active Substance: NEBIVOLOL
     Indication: HYPERTENSION
     Dosage: 5 MG, QD
     Route: 048
  3. TAFINLAR [Suspect]
     Active Substance: DABRAFENIB MESYLATE
     Indication: METASTATIC MALIGNANT MELANOMA
     Dosage: 200 MG, QD
     Route: 048
     Dates: start: 20190122, end: 20190402
  4. MOXONIDIN [Concomitant]
     Active Substance: MOXONIDINE
     Indication: HYPERTENSION
     Dosage: 0.2 MG, QD
     Route: 048
  5. AMLODIPIN [Concomitant]
     Active Substance: AMLODIPINE BESYLATE
     Indication: HYPERTENSION
     Dosage: 10 MG, QD
     Route: 048

REACTIONS (3)
  - Dyspnoea [Recovering/Resolving]
  - Somnolence [Recovering/Resolving]
  - Pulmonary embolism [Recovering/Resolving]

NARRATIVE: CASE EVENT DATE: 20190403
